FAERS Safety Report 25758788 (Version 1)
Quarter: 2025Q3

REPORT INFORMATION
  Report Type: Spontaneous
  Country: EU (occurrence: EU)
  Receive Date: 20250904
  Receipt Date: 20250904
  Transmission Date: 20251021
  Serious: Yes (Death)
  Sender: ALEXION PHARMACEUTICALS
  Company Number: None

PATIENT
  Age: 55 Year
  Sex: Female
  Weight: 60 kg

DRUGS (3)
  1. TICAGRELOR [Suspect]
     Active Substance: TICAGRELOR
     Indication: Thrombosis prophylaxis
     Dosage: 90 MILLIGRAM, Q12H
     Dates: start: 20240313, end: 20240413
  2. KARDEGIC [Suspect]
     Active Substance: ASPIRIN DL-LYSINE
     Indication: Thrombosis prophylaxis
     Dosage: 160 MILLIGRAM, QD
     Dates: start: 20240221, end: 20240413
  3. LOVENOX [Suspect]
     Active Substance: ENOXAPARIN SODIUM
     Indication: Thrombosis prophylaxis
     Dosage: 4000 INTERNATIONAL UNIT, QD
     Dates: start: 20240330, end: 20240413

REACTIONS (1)
  - Haemoptysis [Fatal]

NARRATIVE: CASE EVENT DATE: 20240413
